FAERS Safety Report 5088631-X (Version None)
Quarter: 2006Q3

REPORT INFORMATION
  Report Type: 
  Country: None (occurrence: None)
  Receive Date: 20060822
  Receipt Date: 20060807
  Transmission Date: 20061208
  Serious: Yes (Hospitalization)
  Sender: FDA-Public Use
  Company Number: 2006BH012507

PATIENT
  Age: 4 Year
  Sex: Female

DRUGS (1)
  1. SODIUM CHLORIDE 0.9% [Suspect]
     Indication: TRANSFUSION
     Dosage: IV
     Route: 042
     Dates: start: 20060804, end: 20060804

REACTIONS (6)
  - CATHETER RELATED INFECTION [None]
  - HEADACHE [None]
  - PYREXIA [None]
  - SEPSIS [None]
  - STAPHYLOCOCCAL INFECTION [None]
  - TRANSFUSION REACTION [None]
